FAERS Safety Report 7549740-6 (Version None)
Quarter: 2011Q2

REPORT INFORMATION
  Report Type: 
  Country: None (occurrence: None)
  Receive Date: 20110525
  Receipt Date: 20110216
  Transmission Date: 20111010
  Serious: No
  Sender: FDA-Public Use
  Company Number: 324136

PATIENT
  Age: 67 Year
  Sex: Male
  Weight: 113.4 kg

DRUGS (2)
  1. VICTOZA [Suspect]
     Indication: TYPE 2 DIABETES MELLITUS
     Dosage: SUBCUTANEOUS
     Route: 058
     Dates: start: 20101001
  2. GLUCOPHAGE [Concomitant]

REACTIONS (7)
  - HYPOTENSION [None]
  - WEIGHT DECREASED [None]
  - DYSPEPSIA [None]
  - ERUCTATION [None]
  - DECREASED APPETITE [None]
  - NAUSEA [None]
  - ARTHRALGIA [None]
